FAERS Safety Report 6124118-0 (Version None)
Quarter: 2009Q1

REPORT INFORMATION
  Report Type: 
  Country: None (occurrence: None)
  Receive Date: 20090317
  Receipt Date: 20090304
  Transmission Date: 20090719
  Serious: Yes (Hospitalization, Other)
  Sender: FDA-Public Use
  Company Number: PAR_02329_2008

PATIENT
  Sex: Female

DRUGS (8)
  1. IBUPROFEN [Suspect]
     Indication: PAIN
     Dosage: (DF)
  2. RIVAROXABAN [Suspect]
     Indication: CEREBROVASCULAR ACCIDENT
     Dosage: (1 DF QD ORAL)
     Route: 048
     Dates: start: 20080507, end: 20080803
  3. RIVAROXABAN [Suspect]
     Indication: EMBOLISM
     Dosage: (1 DF QD ORAL)
     Route: 048
     Dates: start: 20080507, end: 20080803
  4. RIVAROXABAN [Suspect]
     Indication: PROPHYLAXIS
     Dosage: (1 DF QD ORAL)
     Route: 048
     Dates: start: 20080507, end: 20080803
  5. RIVAROXABAN [Suspect]
     Indication: CEREBROVASCULAR ACCIDENT
     Dosage: (1 DF QD ORAL)
     Route: 048
     Dates: start: 20080820
  6. RIVAROXABAN [Suspect]
     Indication: EMBOLISM
     Dosage: (1 DF QD ORAL)
     Route: 048
     Dates: start: 20080820
  7. RIVAROXABAN [Suspect]
     Indication: PROPHYLAXIS
     Dosage: (1 DF QD ORAL)
     Route: 048
     Dates: start: 20080820
  8. OLFEN /00372301/ [Concomitant]

REACTIONS (9)
  - ACTIVATED PARTIAL THROMBOPLASTIN TIME PROLONGED [None]
  - HAEMARTHROSIS [None]
  - HAEMATOMA [None]
  - HAEMOGLOBIN DECREASED [None]
  - INTERNATIONAL NORMALISED RATIO INCREASED [None]
  - JOINT EFFUSION [None]
  - LEUKOCYTOSIS [None]
  - MOVEMENT DISORDER [None]
  - RED BLOOD CELL COUNT DECREASED [None]
